FAERS Safety Report 14514437 (Version 2)
Quarter: 2018Q1

REPORT INFORMATION
  Report Type: Spontaneous
  Country: DE (occurrence: DE)
  Receive Date: 20180209
  Receipt Date: 20180214
  Transmission Date: 20180509
  Serious: Yes (Other)
  Sender: FDA-Public Use
  Company Number: DE-PFIZER INC-2017393941

PATIENT
  Age: 76 Year
  Sex: Female
  Weight: 71 kg

DRUGS (11)
  1. HEPARIN-RATIOPHARM [Suspect]
     Active Substance: HEPARIN SODIUM
     Dosage: 45000 IU, DAILY
     Route: 042
     Dates: start: 20170811, end: 20170811
  2. TELMISARTAN. [Concomitant]
     Active Substance: TELMISARTAN
     Dosage: 1 DF, DAILY (80 1X DAILY - 1-0-0)
  3. BISOPROLOL [Concomitant]
     Active Substance: BISOPROLOL
     Dosage: 1 DF, DAILY (5, 1X DAILY - 1-0-0)
  4. ATORVASTATIN [Concomitant]
     Active Substance: ATORVASTATIN
     Dosage: 1 DF, DAILY (1X DAILY - 1-0-0)
  5. TRANEXAMIC ACID. [Suspect]
     Active Substance: TRANEXAMIC ACID
     Dosage: 10 MILLILITRE(S)
  6. HEPARIN-RATIOPHARM [Suspect]
     Active Substance: HEPARIN SODIUM
     Dosage: 45000 IU, DAILY
     Route: 042
     Dates: start: 20170811, end: 20170811
  7. TRANEXAMIC ACID. [Suspect]
     Active Substance: TRANEXAMIC ACID
     Dosage: 2 G, TRANEXAMIC ACID 500 MG 5 ML
     Dates: start: 20170811, end: 20170811
  8. HEPARIN-RATIOPHARM [Suspect]
     Active Substance: HEPARIN SODIUM
     Dosage: 45000 IU, DAILY
     Route: 042
     Dates: start: 20170811, end: 20170811
  9. NORADRENALINE [Concomitant]
     Active Substance: NOREPINEPHRINE
     Dosage: POST-OP UP TO 0.8 UG/KG/MIN
  10. L-THYROXIN [Concomitant]
     Active Substance: LEVOTHYROXINE SODIUM
     Dosage: 1 DF, DAILY (100 1X DAILY - 1-0-0)
  11. HCT [Concomitant]
     Active Substance: HYDROCHLOROTHIAZIDE
     Dosage: 1 DF, DAILY (12.5, 1X DAILY)

REACTIONS (4)
  - Vasodilatation [Recovered/Resolved]
  - Blood pressure decreased [Recovered/Resolved]
  - Circulatory collapse [Recovered/Resolved]
  - Drug ineffective [Unknown]

NARRATIVE: CASE EVENT DATE: 20170811
